FAERS Safety Report 6364153-0 (Version None)
Quarter: 2009Q3

REPORT INFORMATION
  Report Type: 
  Country: None (occurrence: None)
  Receive Date: 20090919
  Receipt Date: 20090715
  Transmission Date: 20100115
  Serious: No
  Sender: FDA-Public Use
  Company Number: US-ABBOTT-09P-163-0585507-00

PATIENT
  Sex: Female
  Weight: 52.21 kg

DRUGS (1)
  1. HUMIRA [Suspect]
     Indication: CROHN'S DISEASE
     Dates: start: 20090401

REACTIONS (7)
  - EAR PAIN [None]
  - LACRIMATION INCREASED [None]
  - MIGRAINE [None]
  - NAUSEA [None]
  - NECK PAIN [None]
  - TOOTHACHE [None]
  - VOMITING [None]
